FAERS Safety Report 9133053 (Version 1)
Quarter: 2013Q1

REPORT INFORMATION
  Report Type: Spontaneous
  Country: US (occurrence: US)
  Receive Date: 20130128
  Receipt Date: 20130128
  Transmission Date: 20140127
  Serious: No
  Sender: FDA-Public Use
  Company Number: US-PFIZER INC-2012231878

PATIENT
  Age: 73 Year
  Sex: Male
  Weight: 90.7 kg

DRUGS (5)
  1. SUTENT [Suspect]
     Indication: THYROID CANCER
     Dosage: 50 MG, 1X/DAY, 4 WEEKS ON/2 WEEKS OFF
     Route: 048
     Dates: start: 201112
  2. LEVOTHYROXINE [Concomitant]
     Dosage: UNK
  3. LISINOPRIL [Concomitant]
     Dosage: UNK
  4. FLOMAX [Concomitant]
     Dosage: UNK
  5. HYTRIN [Concomitant]
     Indication: PROSTATIC DISORDER
     Dosage: 2 MG, DAILY

REACTIONS (3)
  - Hypertension [Unknown]
  - Disease progression [Unknown]
  - Thyroid cancer [Unknown]
